FAERS Safety Report 4553410-6 (Version None)
Quarter: 2005Q1

REPORT INFORMATION
  Report Type: 
  Country: None (occurrence: None)
  Receive Date: 20050112
  Receipt Date: 20041230
  Transmission Date: 20050727
  Serious: Yes (Hospitalization, Other)
  Sender: FDA-Public Use
  Company Number: HQWYE171923DEC04

PATIENT
  Age: 44 Year
  Sex: Male
  Weight: 106.6 kg

DRUGS (8)
  1. RAPAMUNE [Suspect]
     Indication: PROPHYLAXIS AGAINST TRANSPLANT REJECTION
     Dosage: ORAL
     Route: 048
     Dates: start: 20021107
  2. ALLOPURINOL [Concomitant]
  3. LANSOPRAZOLE [Concomitant]
  4. SILDENAFIL (SILDENAFIL) [Concomitant]
  5. MIRTAZAPINE [Concomitant]
  6. VENLAFAXINE (VENLAFAXINE HYDROCHLORIDE) [Concomitant]
  7. AMITRIPTYLINE (AMITRIPTYLINE) [Concomitant]
  8. ATENOLOL [Concomitant]

REACTIONS (6)
  - BLOOD CREATININE INCREASED [None]
  - CHEST PAIN [None]
  - ELECTROCARDIOGRAM ST SEGMENT DEPRESSION [None]
  - ELECTROCARDIOGRAM ST-T CHANGE [None]
  - EXERCISE TEST ABNORMAL [None]
  - MYOCARDIAL ISCHAEMIA [None]
